FAERS Safety Report 8440267 (Version 3)
Quarter: 2013Q3

REPORT INFORMATION
  Report Type: Spontaneous
  Country: US (occurrence: US)
  Receive Date: 20120305
  Receipt Date: 20130807
  Transmission Date: 20140515
  Serious: Yes (Hospitalization)
  Sender: FDA-Public Use
  Company Number: US-US-EMD SERONO, INC.-7115324

PATIENT
  Age: 59 Year
  Sex: Female
  Weight: 100 kg

DRUGS (13)
  1. REBIF [Suspect]
     Indication: MULTIPLE SCLEROSIS
     Route: 058
     Dates: start: 2011, end: 201307
  2. COUMADIN [Suspect]
     Indication: PULMONARY EMBOLISM
  3. SENNA [Concomitant]
     Indication: PRODUCT USED FOR UNKNOWN INDICATION
  4. FUROSEMIDE [Concomitant]
     Indication: FLUID RETENTION
  5. BUPROPION [Concomitant]
     Indication: DEPRESSION
  6. SPIRONOLACTONE [Concomitant]
     Indication: FLUID RETENTION
  7. AMITRIPTYLINE [Concomitant]
     Indication: PAIN
  8. AMITRIPTYLINE [Concomitant]
     Indication: SLEEP DISORDER
  9. CALCIUM+D [Concomitant]
     Indication: MINERAL SUPPLEMENTATION
  10. POTASSIUM [Concomitant]
     Indication: MINERAL SUPPLEMENTATION
  11. MELATONIN [Concomitant]
     Indication: SLEEP DISORDER
  12. OMEPRAZOLE [Concomitant]
     Indication: DYSPEPSIA
  13. OMEPRAZOLE [Concomitant]
     Indication: DYSPHAGIA

REACTIONS (6)
  - International normalised ratio increased [Not Recovered/Not Resolved]
  - Nasal cyst [Unknown]
  - Sinusitis [Unknown]
  - Joint injury [Unknown]
  - Tremor [Unknown]
  - Arthralgia [Unknown]
